FAERS Safety Report 9618081 (Version 5)
Quarter: 2014Q3

REPORT INFORMATION
  Report Type: Spontaneous
  Country: US (occurrence: US)
  Receive Date: 20131012
  Receipt Date: 20140704
  Transmission Date: 20150326
  Serious: Yes (Hospitalization)
  Sender: FDA-Public Use
  Company Number: US-BRISTOL-MYERS SQUIBB COMPANY-19526722

PATIENT
  Age: 86 Year
  Sex: Female
  Weight: 55.78 kg

DRUGS (5)
  1. TOPROL XL [Interacting]
     Active Substance: METOPROLOL SUCCINATE
     Indication: HYPERTENSION
     Route: 048
     Dates: start: 2013, end: 201309
  2. ASPIRIN. [Interacting]
     Active Substance: ASPIRIN
     Indication: CARDIAC DISORDER
     Route: 048
  3. ACCUPRIL [Interacting]
     Active Substance: QUINAPRIL HYDROCHLORIDE
     Indication: HYPERTENSION
     Dosage: TABS?5MG TABLET AND 20MG TAB TOGETHER
     Route: 048
  4. GLUCOPHAGE [Suspect]
     Active Substance: METFORMIN HYDROCHLORIDE
     Indication: DIABETES MELLITUS
  5. PROCARDIA XL [Interacting]
     Active Substance: NIFEDIPINE
     Indication: ATRIOVENTRICULAR DISSOCIATION
     Dosage: DOSE REDUCED TO 30 ML
     Route: 048

REACTIONS (5)
  - Colitis ischaemic [Recovering/Resolving]
  - Atrioventricular block complete [Unknown]
  - Blood glucose increased [Unknown]
  - Drug interaction [Unknown]
  - Sinus bradycardia [Recovering/Resolving]

NARRATIVE: CASE EVENT DATE: 20130908
